FAERS Safety Report 22627321 (Version 3)
Quarter: 2023Q4

REPORT INFORMATION
  Report Type: Report from Study
  Country: TH (occurrence: None)
  Receive Date: 20230622
  Receipt Date: 20231226
  Transmission Date: 20240110
  Serious: Yes (Other)
  Sender: FDA-Public Use
  Company Number: 2023A115028

PATIENT
  Age: 25691 Day
  Sex: Male
  Weight: 65 kg

DRUGS (1)
  1. IMFINZI [Suspect]
     Active Substance: DURVALUMAB
     Indication: Non-small cell lung cancer
     Dosage: 620.0MG NOT APPLICABLE
     Route: 041
     Dates: start: 20230512

REACTIONS (5)
  - Glomerular filtration rate abnormal [Unknown]
  - Glomerular filtration rate decreased [Unknown]
  - Weight increased [Unknown]
  - Underdose [Unknown]
  - Off label use [Unknown]

NARRATIVE: CASE EVENT DATE: 20230101
